FAERS Safety Report 6397449-7 (Version None)
Quarter: 2009Q4

REPORT INFORMATION
  Report Type: 
  Country: None (occurrence: None)
  Receive Date: 20091012
  Receipt Date: 20091006
  Transmission Date: 20100525
  Serious: Yes (Death, Other)
  Sender: FDA-Public Use
  Company Number: PHEH2009US11021

PATIENT
  Sex: Female

DRUGS (7)
  1. EXJADE [Suspect]
     Indication: IRON OVERLOAD
     Dosage: 1000 MG PER DAY
     Route: 048
     Dates: start: 20070901, end: 20090701
  2. LISINOPRIL [Concomitant]
     Indication: BLOOD PRESSURE
     Dosage: 20 MG, QD
     Route: 048
  3. MIRALAX [Concomitant]
     Indication: CONSTIPATION
     Route: 048
  4. COMPAZINE [Concomitant]
     Indication: NAUSEA
     Dosage: 10 MG
     Route: 048
  5. COMPAZINE [Concomitant]
     Indication: VOMITING
  6. OXYCODONE [Concomitant]
     Indication: PAIN
     Dosage: 5 MG
     Route: 048
  7. ANTIHISTAMINES [Concomitant]

REACTIONS (4)
  - DISEASE PROGRESSION [None]
  - HAEMOGLOBIN DECREASED [None]
  - PLATELET COUNT DECREASED [None]
  - WHITE BLOOD CELL COUNT DECREASED [None]
